FAERS Safety Report 6280399-4 (Version None)
Quarter: 2009Q3

REPORT INFORMATION
  Report Type: 
  Country: None (occurrence: None)
  Receive Date: 20090724
  Receipt Date: 20090713
  Transmission Date: 20100115
  Serious: Yes (Hospitalization)
  Sender: FDA-Public Use
  Company Number: BE-PFIZER INC-2009239163

PATIENT

DRUGS (1)
  1. SUTENT [Suspect]
     Dosage: UNK
     Route: 048
     Dates: end: 20090712

REACTIONS (1)
  - PERITONITIS [None]
